FAERS Safety Report 4454016-X (Version None)
Quarter: 2004Q3

REPORT INFORMATION
  Report Type: 
  Country: None (occurrence: None)
  Receive Date: 20040920
  Receipt Date: 20040913
  Transmission Date: 20050211
  Serious: Yes (Death, Hospitalization)
  Sender: FDA-Public Use
  Company Number: US-BRISTOL-MYERS SQUIBB COMPANY-12699104

PATIENT
  Age: 45 Year
  Sex: Male

DRUGS (4)
  1. TEQUIN [Suspect]
     Indication: CHRONIC SINUSITIS
  2. CLINDAMYCIN [Suspect]
     Indication: CHRONIC SINUSITIS
  3. AUGMENTIN [Suspect]
     Indication: CHRONIC SINUSITIS
  4. AVELOX [Suspect]
     Indication: SINUSITIS
     Route: 048

REACTIONS (4)
  - ASCITES [None]
  - HEPATIC FAILURE [None]
  - JAUNDICE [None]
  - MULTI-ORGAN FAILURE [None]
